FAERS Safety Report 16757999 (Version 3)
Quarter: 2019Q3

REPORT INFORMATION
  Report Type: Spontaneous
  Country: CN (occurrence: CN)
  Receive Date: 20190830
  Receipt Date: 20190916
  Transmission Date: 20191005
  Serious: Yes (Other)
  Sender: FDA-Public Use
  Company Number: CN-ASTRAZENECA-2019SF22386

PATIENT
  Age: 581 Month
  Sex: Male
  Weight: 70 kg

DRUGS (1)
  1. IRESSA [Suspect]
     Active Substance: GEFITINIB
     Indication: NON-SMALL CELL LUNG CANCER
     Dosage: 1 TABLET EVERY MORNING AFTER GETTING UP
     Route: 048
     Dates: start: 20180304, end: 201907

REACTIONS (15)
  - Malignant neoplasm progression [Unknown]
  - Metastases to bone [Unknown]
  - Throat irritation [Unknown]
  - Visual acuity reduced [Recovering/Resolving]
  - Dry throat [Unknown]
  - EGFR gene mutation [Unknown]
  - Arthralgia [Unknown]
  - Rash erythematous [Recovering/Resolving]
  - Metastases to liver [Unknown]
  - Pleural effusion [Unknown]
  - Drug resistance [Unknown]
  - Metastases to central nervous system [Unknown]
  - Metastases to meninges [Unknown]
  - Cholelithiasis [Unknown]
  - Dizziness [Recovering/Resolving]

NARRATIVE: CASE EVENT DATE: 201802
